FAERS Safety Report 14306568 (Version 1)
Quarter: 2017Q4

REPORT INFORMATION
  Report Type: Other
  Country: GB (occurrence: GB)
  Receive Date: 20171220
  Receipt Date: 20171220
  Transmission Date: 20180321
  Serious: Yes (Other)
  Sender: FDA-Public Use
  Company Number: GB-DEXPHARM-20171912

PATIENT

DRUGS (1)
  1. DICLOFENAC HPBCD [Suspect]
     Active Substance: DICLOFENAC
     Indication: DENTAL OPERATION

REACTIONS (1)
  - Mucocutaneous flap necrosis [Recovered/Resolved]
